FAERS Safety Report 9563786 (Version 1)
Quarter: 2013Q3

REPORT INFORMATION
  Report Type: Spontaneous
  Country: US (occurrence: None)
  Receive Date: 20130926
  Receipt Date: 20130926
  Transmission Date: 20140515
  Serious: Yes (Other)
  Sender: FDA-Public Use
  Company Number: None

PATIENT
  Age: 58 Year
  Sex: Female
  Weight: 63.5 kg

DRUGS (8)
  1. PRED FORTE [Suspect]
     Indication: CATARACT OPERATION
     Dosage: 2-3 X DAILY OVER SEVERAL WEEKS, EYE DROPS
     Dates: start: 20130403, end: 201305
  2. KETOROLAC [Suspect]
     Dosage: 2-3 TIMES DAILY OVER SEVERAL WEEKS
     Dates: start: 20130403, end: 201305
  3. RETIN-A [Concomitant]
  4. KETO [Concomitant]
  5. ASTAXANTHIN [Concomitant]
  6. B-100 BEET JUICE [Concomitant]
  7. CALCIUM [Concomitant]
  8. CALCIUM D [Concomitant]

REACTIONS (2)
  - Tinnitus [None]
  - Hypoacusis [None]
